FAERS Safety Report 16085356 (Version 2)
Quarter: 2019Q2

REPORT INFORMATION
  Report Type: Report from Study
  Country: UY (occurrence: UY)
  Receive Date: 20190318
  Receipt Date: 20190403
  Transmission Date: 20190711
  Serious: Yes (Death, Other)
  Sender: FDA-Public Use
  Company Number: UY-SA-2019SA072767

PATIENT
  Age: 29 Year
  Sex: Male

DRUGS (2)
  1. INSULIN GLARGINE [Suspect]
     Active Substance: INSULIN GLARGINE
     Indication: TYPE 1 DIABETES MELLITUS
     Dosage: UNK UNK, UNK
     Dates: start: 201601
  2. INSULIN GLULISINE [Suspect]
     Active Substance: INSULIN GLULISINE
     Indication: TYPE 1 DIABETES MELLITUS
     Dosage: UNK UNK, UNK
     Dates: start: 201510

REACTIONS (4)
  - Loss of consciousness [Fatal]
  - Dyspepsia [Fatal]
  - Aspiration [Fatal]
  - Respiratory tract congestion [Fatal]
